FAERS Safety Report 4377707-8 (Version None)
Quarter: 2004Q2

REPORT INFORMATION
  Report Type: 
  Country: None (occurrence: None)
  Receive Date: 20040615
  Receipt Date: 20040604
  Transmission Date: 20050107
  Serious: Yes (Hospitalization)
  Sender: FDA-Public Use
  Company Number: FR-BRISTOL-MYERS SQUIBB COMPANY-12610853

PATIENT
  Age: 69 Year
  Sex: Female

DRUGS (6)
  1. GLUCOPHAGE [Suspect]
     Route: 048
     Dates: end: 20040503
  2. PRETERAX [Suspect]
     Route: 048
     Dates: end: 20040503
  3. ALLOPURINOL TAB [Suspect]
     Route: 048
     Dates: start: 20040106, end: 20040503
  4. KARDEGIC [Suspect]
     Route: 048
     Dates: end: 20040503
  5. FENOFIBRATE [Suspect]
     Route: 048
     Dates: end: 20040503
  6. NOVONORM [Suspect]
     Route: 048
     Dates: end: 20040503

REACTIONS (3)
  - AGRANULOCYTOSIS [None]
  - HYPERGLOBULINAEMIA [None]
  - INFLAMMATION [None]
